FAERS Safety Report 6458105-X (Version None)
Quarter: 2009Q4

REPORT INFORMATION
  Report Type: 
  Country: None (occurrence: None)
  Receive Date: 20091125
  Receipt Date: 20091112
  Transmission Date: 20100525
  Serious: Yes (Other)
  Sender: FDA-Public Use
  Company Number: TW-GENENTECH-294648

PATIENT
  Sex: Male

DRUGS (4)
  1. AVASTIN [Suspect]
     Indication: COLON CANCER
     Dosage: UNK
     Route: 042
     Dates: end: 20091101
  2. FLUOROURACIL [Concomitant]
     Indication: COLON CANCER
  3. FOLINIC ACID [Concomitant]
     Indication: COLON CANCER
  4. IRINOTECAN HCL [Concomitant]
     Indication: COLON CANCER

REACTIONS (1)
  - TUMOUR PERFORATION [None]
